FAERS Safety Report 7337092-6 (Version None)
Quarter: 2011Q1

REPORT INFORMATION
  Report Type: 
  Country: None (occurrence: None)
  Receive Date: 20110308
  Receipt Date: 20110303
  Transmission Date: 20110831
  Serious: Yes (Death, Hospitalization)
  Sender: FDA-Public Use
  Company Number: PHHO2011HU04150

PATIENT
  Age: 23 Year
  Sex: Male
  Weight: 72 kg

DRUGS (3)
  1. PREGABALIN [Concomitant]
     Indication: EPILEPSY
     Dosage: CODE NOT BROKEN
     Route: 048
  2. KEPPRA [Concomitant]
     Indication: EPILEPSY
     Dosage: UNK
     Route: 048
  3. TEGRETOL [Suspect]
     Indication: EPILEPSY
     Dosage: UNK
     Route: 048

REACTIONS (17)
  - COMPLETED SUICIDE [None]
  - ACUTE RESPIRATORY DISTRESS SYNDROME [None]
  - PNEUMONIA [None]
  - HYPOXIC-ISCHAEMIC ENCEPHALOPATHY [None]
  - BRAIN INJURY [None]
  - INCORRECT DOSE ADMINISTERED [None]
  - POISONING [None]
  - COMA [None]
  - OXYGEN SATURATION DECREASED [None]
  - ANGER [None]
  - AGGRESSION [None]
  - CARDIAC ARREST [None]
  - PYREXIA [None]
  - PULMONARY FUNCTION TEST DECREASED [None]
  - ALCOHOL POISONING [None]
  - CONVULSION [None]
  - HAEMOPHILUS INFECTION [None]
